FAERS Safety Report 21945037 (Version 1)
Quarter: 2023Q1

REPORT INFORMATION
  Report Type: Spontaneous
  Country: US (occurrence: None)
  Receive Date: 20230201
  Receipt Date: 20230201
  Transmission Date: 20230417
  Serious: Yes (Hospitalization)
  Sender: FDA-Public Use
  Company Number: None

PATIENT
  Age: 67 Year
  Sex: Male
  Weight: 88.7 kg

DRUGS (1)
  1. LURBINECTEDIN [Suspect]
     Active Substance: LURBINECTEDIN

REACTIONS (1)
  - Chest pain [None]

NARRATIVE: CASE EVENT DATE: 20230128
